FAERS Safety Report 7996766-4 (Version None)
Quarter: 2011Q4

REPORT INFORMATION
  Report Type: 
  Country: None (occurrence: None)
  Receive Date: 20111221
  Receipt Date: 20111216
  Transmission Date: 20120403
  Serious: Yes (Other)
  Sender: FDA-Public Use
  Company Number: DE-NAPPMUNDI-DEU-2011-0007866

PATIENT
  Age: 40 Year
  Sex: Male

DRUGS (3)
  1. ANALGESICS [Suspect]
     Indication: PRODUCT USED FOR UNKNOWN INDICATION
  2. PALLADONE [Suspect]
     Indication: PRODUCT USED FOR UNKNOWN INDICATION
  3. HYDROMORPHONE HCL [Suspect]
     Indication: PRODUCT USED FOR UNKNOWN INDICATION

REACTIONS (2)
  - CONVULSION [None]
  - ARTHRALGIA [None]
